FAERS Safety Report 18932055 (Version 1)
Quarter: 2021Q1

REPORT INFORMATION
  Report Type: Spontaneous
  Country: ID (occurrence: ID)
  Receive Date: 20210224
  Receipt Date: 20210224
  Transmission Date: 20210420
  Serious: Yes (Other)
  Sender: FDA-Public Use
  Company Number: ID-LUPIN PHARMACEUTICALS INC.-2021-02129

PATIENT
  Age: 42 Year
  Sex: Male

DRUGS (9)
  1. AZITHROMYCIN ANHYDROUS. [Concomitant]
     Active Substance: AZITHROMYCIN ANHYDROUS
     Indication: TUBERCULOSIS
     Dosage: UNK (STOPPED)
     Route: 065
     Dates: start: 2020
  2. CEFTRIAXON [Concomitant]
     Active Substance: CEFTRIAXONE
     Indication: ANTIBIOTIC THERAPY
  3. OSELTAMIVIR [Suspect]
     Active Substance: OSELTAMIVIR
     Indication: COVID-19
     Dosage: UNK (STOPPED)
     Route: 065
     Dates: start: 2020
  4. CEFTRIAXON [Concomitant]
     Active Substance: CEFTRIAXONE
     Indication: TUBERCULOSIS
     Dosage: UNK (STOPPED)
     Route: 065
     Dates: start: 2020
  5. CEFTAZIDIME. [Concomitant]
     Active Substance: CEFTAZIDIME
     Indication: ANTIBIOTIC THERAPY
  6. HYDROXYCHLOROQUINE [Suspect]
     Active Substance: HYDROXYCHLOROQUINE
     Indication: COVID-19
     Dosage: UNK
     Route: 065
     Dates: start: 2020
  7. CEFTAZIDIME. [Concomitant]
     Active Substance: CEFTAZIDIME
     Indication: TUBERCULOSIS
     Dosage: UNK (STOPPED)
     Route: 065
     Dates: start: 2020
  8. RIFAMPICIN/ISONIAZID/PYRAZINAMIDE/ETHAMBUTOL HYDROCHLORIDE [Concomitant]
     Indication: TUBERCULOSIS
     Dosage: 4 DOSAGE FORM, QD
     Route: 048
     Dates: start: 2020
  9. RIFAMPICIN/ISONIAZID/PYRAZINAMIDE/ETHAMBUTOL HYDROCHLORIDE [Concomitant]
     Dosage: 2 DOSAGE FORM, QD
     Route: 048

REACTIONS (1)
  - Off label use [Unknown]

NARRATIVE: CASE EVENT DATE: 2020
